FAERS Safety Report 13209502 (Version 4)
Quarter: 2018Q1

REPORT INFORMATION
  Report Type: Report from Study
  Country: CA (occurrence: CA)
  Receive Date: 20170209
  Receipt Date: 20180116
  Transmission Date: 20180508
  Serious: Yes (Other)
  Sender: FDA-Public Use
  Company Number: CA-GLAXOSMITHKLINE-CA2017GSK018359

PATIENT
  Age: 58 Year
  Sex: Male

DRUGS (8)
  1. OTEZLA [Concomitant]
     Active Substance: APREMILAST
  2. IBUPROFEN. [Concomitant]
     Active Substance: IBUPROFEN
  3. COSENTYX [Suspect]
     Active Substance: SECUKINUMAB
     Indication: PSORIATIC ARTHROPATHY
     Dosage: 150 MG, QW
     Route: 058
     Dates: start: 20170121, end: 20170127
  4. METHOTREXATE. [Concomitant]
     Active Substance: METHOTREXATE
  5. COSENTYX [Suspect]
     Active Substance: SECUKINUMAB
     Dosage: 150 MG, QMO
     Route: 058
     Dates: start: 20170203
  6. FOLIC ACID. [Concomitant]
     Active Substance: FOLIC ACID
  7. DICLOFENAC SODIUM. [Suspect]
     Active Substance: DICLOFENAC SODIUM
     Indication: PRODUCT USED FOR UNKNOWN INDICATION
     Route: 065
  8. COSENTYX [Suspect]
     Active Substance: SECUKINUMAB
     Indication: PSORIASIS
     Dosage: 150 MG, QW
     Route: 058
     Dates: start: 20170106

REACTIONS (5)
  - Contusion [Unknown]
  - Diverticulitis [Unknown]
  - Injury [Unknown]
  - Pruritus [Not Recovered/Not Resolved]
  - Psoriasis [Unknown]

NARRATIVE: CASE EVENT DATE: 201701
